FAERS Safety Report 17163051 (Version 1)
Quarter: 2019Q4

REPORT INFORMATION
  Report Type: Spontaneous
  Country: US (occurrence: US)
  Receive Date: 20191216
  Receipt Date: 20191216
  Transmission Date: 20200122
  Serious: Yes (Hospitalization)
  Sender: FDA-Public Use
  Company Number: None

PATIENT
  Age: 75 Year
  Sex: Female
  Weight: 92.8 kg

DRUGS (8)
  1. ASPIRIN. [Suspect]
     Active Substance: ASPIRIN
     Route: 048
     Dates: start: 20150411
  2. AMLODIPINE 5MG DAILY [Concomitant]
  3. LATANOPROST 0.005% 1 DROP OU DAILY [Concomitant]
  4. CO-ENZYME Q10 30MG DAILY [Concomitant]
  5. APIXABAN [Suspect]
     Active Substance: APIXABAN
     Indication: ATRIAL FIBRILLATION
     Route: 048
     Dates: start: 20150928
  6. DILTIAZEM 240MG BID [Concomitant]
  7. LOSARTAN 50MG BID [Concomitant]
  8. MELOXICAM 7.5MG DAILY [Concomitant]

REACTIONS (1)
  - Epistaxis [None]

NARRATIVE: CASE EVENT DATE: 20151102
